FAERS Safety Report 9335373 (Version 2)
Quarter: 2016Q3

REPORT INFORMATION
  Report Type: Spontaneous
  Country: US (occurrence: US)
  Receive Date: 20130606
  Receipt Date: 20160721
  Transmission Date: 20161109
  Serious: Yes (Hospitalization)
  Sender: FDA-Public Use
  Company Number: US-RANBAXY-2013US-69860

PATIENT
  Age: 37 Year
  Sex: Female

DRUGS (1)
  1. ACETAMINOPHEN. [Suspect]
     Active Substance: ACETAMINOPHEN
     Indication: PRODUCT USED FOR UNKNOWN INDICATION
     Dosage: UNK
     Route: 048

REACTIONS (9)
  - Toxicity to various agents [Recovering/Resolving]
  - Acute hepatic failure [Recovering/Resolving]
  - Coagulopathy [Recovering/Resolving]
  - Extensor plantar response [Recovered/Resolved]
  - Hyperbilirubinaemia [Recovering/Resolving]
  - Encephalopathy [Recovered/Resolved]
  - Renal failure [Recovering/Resolving]
  - Decerebrate posture [Recovered/Resolved]
  - Clonus [Recovered/Resolved]
